FAERS Safety Report 25367727 (Version 1)
Quarter: 2025Q2

REPORT INFORMATION
  Report Type: Spontaneous
  Country: EG (occurrence: EG)
  Receive Date: 20250528
  Receipt Date: 20250528
  Transmission Date: 20250716
  Serious: Yes (Life-Threatening)
  Sender: NOVO NORDISK
  Company Number: EG-NOVOPROD-1436741

PATIENT
  Sex: Male

DRUGS (2)
  1. ACTRAPID [Suspect]
     Active Substance: INSULIN HUMAN
     Dosage: 30 IU, QD (MORNING)
  2. ACTRAPID [Suspect]
     Active Substance: INSULIN HUMAN
     Indication: Product used for unknown indication
     Dosage: 32 IU, QD

REACTIONS (1)
  - Neoplasm malignant [Unknown]
